FAERS Safety Report 25280178 (Version 3)
Quarter: 2025Q3

REPORT INFORMATION
  Report Type: Report from Study
  Country: GB (occurrence: GB)
  Receive Date: 20250507
  Receipt Date: 20250803
  Transmission Date: 20251020
  Serious: Yes (Other)
  Sender: ALEXION PHARMACEUTICALS
  Company Number: GB-AstraZeneca-CH-00862786A

PATIENT
  Age: 32 Year
  Sex: Female

DRUGS (1)
  1. ULTOMIRIS [Suspect]
     Active Substance: RAVULIZUMAB-CWVZ
     Indication: Paroxysmal nocturnal haemoglobinuria
     Dosage: 3300 MILLIGRAM, Q8W

REACTIONS (10)
  - Extravascular haemolysis [Not Recovered/Not Resolved]
  - Viral infection [Recovered/Resolved]
  - Abdominal pain upper [Not Recovered/Not Resolved]
  - Anxiety [Not Recovered/Not Resolved]
  - Chest discomfort [Not Recovered/Not Resolved]
  - Fatigue [Recovering/Resolving]
  - Haemoglobin decreased [Unknown]
  - Neutrophil count decreased [Unknown]
  - White blood cell count decreased [Unknown]
  - Pain [Unknown]

NARRATIVE: CASE EVENT DATE: 20250401
